FAERS Safety Report 9888131 (Version 1)
Quarter: 2014Q1

REPORT INFORMATION
  Report Type: Spontaneous
  Country: DK (occurrence: None)
  Receive Date: 20140207
  Receipt Date: 20140207
  Transmission Date: 20141002
  Serious: Yes (Hospitalization)
  Sender: FDA-Public Use
  Company Number: 2014DE0038

PATIENT
  Age: 74 Year
  Sex: Male

DRUGS (3)
  1. KINERET [Suspect]
     Indication: GOUT
     Dates: start: 201305, end: 20130728
  2. MICARDIS (TELMISARTAN) (40 MILLIGRAM) (TELEMISARTAN) [Concomitant]
  3. ADENURIC (FEBUXOSTAT) (80 MILLIGRAM) (FEBUXOSTAT) [Concomitant]

REACTIONS (1)
  - Myocardial infarction [None]
